FAERS Safety Report 20794625 (Version 2)
Quarter: 2022Q2

REPORT INFORMATION
  Report Type: Spontaneous
  Country: US (occurrence: US)
  Receive Date: 20220506
  Receipt Date: 20220516
  Transmission Date: 20220721
  Serious: Yes (Other)
  Sender: FDA-Public Use
  Company Number: US-009507513-2205USA000893

PATIENT
  Age: 90 Year
  Sex: Female

DRUGS (1)
  1. MOLNUPIRAVIR [Suspect]
     Active Substance: MOLNUPIRAVIR
     Dosage: UNK
     Route: 048
     Dates: start: 20220501

REACTIONS (2)
  - Choking [Unknown]
  - Product use complaint [Unknown]

NARRATIVE: CASE EVENT DATE: 20220501
